FAERS Safety Report 8594968-X (Version None)
Quarter: 2012Q3

REPORT INFORMATION
  Report Type: 
  Country: None (occurrence: None)
  Receive Date: 20120815
  Receipt Date: 20120813
  Transmission Date: 20120928
  Serious: Yes (Other)
  Sender: FDA-Public Use
  Company Number: PHHY2012BR059195

PATIENT
  Sex: Female

DRUGS (6)
  1. LEVOTHYROXINE SODIUM [Concomitant]
     Indication: THYROID NEOPLASM
     Dosage: 1 DF (50 MG), A DAY (IN FASTING)
     Route: 048
  2. Z- CAL REUMAFORTE [Concomitant]
     Indication: ARTHRALGIA
     Dosage: 1 DF, EVERY 2 DAYS
  3. MAGNESIUM [Concomitant]
     Indication: OSTEOARTHRITIS
     Dosage: 1 DF, DAILY
     Route: 048
     Dates: start: 20120601
  4. BETAHISTINE HYDROCHLORIDE [Concomitant]
     Indication: LABYRINTHITIS
     Dosage: 1 DF DAILY, FOR ONE WEEK
     Route: 048
  5. DIOVAN HCT [Suspect]
     Indication: HYPERTENSION
     Dosage: 1 DF (80/12.5 MG), A DAY
     Route: 048
  6. GLUCOSAMINE SULFATE [Concomitant]
     Indication: OSTEOARTHRITIS
     Dosage: 628 MG, DAILY
     Route: 048
     Dates: start: 20120601

REACTIONS (7)
  - FALL [None]
  - JOINT INJURY [None]
  - ARTHRALGIA [None]
  - DYSPNOEA [None]
  - THYROID NEOPLASM [None]
  - PAIN [None]
  - ARTHRITIS [None]
